FAERS Safety Report 20567125 (Version 3)
Quarter: 2022Q3

REPORT INFORMATION
  Report Type: Spontaneous
  Country: US (occurrence: US)
  Receive Date: 20220308
  Receipt Date: 20220824
  Transmission Date: 20221026
  Serious: Yes (Hospitalization, Other)
  Sender: FDA-Public Use
  Company Number: US-PFIZER INC-202101069919

PATIENT
  Age: 71 Year
  Sex: Female
  Weight: 81.65 kg

DRUGS (1)
  1. XELJANZ XR [Suspect]
     Active Substance: TOFACITINIB CITRATE
     Indication: Rheumatoid arthritis
     Dosage: 11 MG, 1X/DAY

REACTIONS (7)
  - COVID-19 [Recovered/Resolved]
  - Pneumonia [Recovered/Resolved with Sequelae]
  - Immunodeficiency [Unknown]
  - Illness [Unknown]
  - Feeling abnormal [Unknown]
  - Alopecia [Unknown]
  - Hypoacusis [Unknown]
